FAERS Safety Report 9930950 (Version 1)
Quarter: 2014Q1

REPORT INFORMATION
  Report Type: Spontaneous
  Country: US (occurrence: US)
  Receive Date: 20140227
  Receipt Date: 20140227
  Transmission Date: 20141002
  Serious: No
  Sender: FDA-Public Use
  Company Number: US-AMGEN-USASP2014007643

PATIENT
  Age: 46 Year
  Sex: Female

DRUGS (2)
  1. ENBREL [Suspect]
     Indication: RHEUMATOID ARTHRITIS
     Dosage: 50 MG, QWK
     Route: 065
     Dates: start: 20130601, end: 20140118
  2. METHOTREXATE [Concomitant]
     Dosage: UNK

REACTIONS (8)
  - Fall [Not Recovered/Not Resolved]
  - Impaired healing [Not Recovered/Not Resolved]
  - Skin irritation [Not Recovered/Not Resolved]
  - Skin lesion [Not Recovered/Not Resolved]
  - Head injury [Recovered/Resolved]
  - Headache [Recovered/Resolved]
  - Excoriation [Not Recovered/Not Resolved]
  - Wound infection [Not Recovered/Not Resolved]
